FAERS Safety Report 4662080-8 (Version None)
Quarter: 2005Q2

REPORT INFORMATION
  Report Type: 
  Country: None (occurrence: None)
  Receive Date: 20050512
  Receipt Date: 20050426
  Transmission Date: 20051028
  Serious: Yes (Other)
  Sender: FDA-Public Use
  Company Number: A-US2004-08267

PATIENT
  Age: 76 Year
  Sex: Female
  Weight: 77 kg

DRUGS (3)
  1. TRACLEER [Suspect]
     Indication: PULMONARY HYPERTENSION
     Dosage: 62.5 MG, BID, ORAL
     Route: 048
     Dates: start: 20041018, end: 20041114
  2. COUMADIN [Concomitant]
  3. LASIX [Concomitant]

REACTIONS (5)
  - DIZZINESS [None]
  - DYSPEPSIA [None]
  - HEADACHE [None]
  - PAIN IN EXTREMITY [None]
  - PRURITUS [None]
